FAERS Safety Report 9767883 (Version 3)
Quarter: 2014Q2

REPORT INFORMATION
  Report Type: Spontaneous
  Country: US (occurrence: US)
  Receive Date: 20131217
  Receipt Date: 20140508
  Transmission Date: 20141212
  Serious: Yes (Other)
  Sender: FDA-Public Use
  Company Number: US-PERRIGO-13US012656

PATIENT
  Age: 62 Year
  Sex: Female
  Weight: 68.27 kg

DRUGS (2)
  1. XC DAY PE-NITE FREE LIQGL 977/994 COMBO 090 [Suspect]
     Indication: NASOPHARYNGITIS
     Dosage: 2 LIQUID GELS, AT BEDTIME
     Route: 048
     Dates: start: 20131205, end: 20131205
  2. LEVOTHYROXINE [Concomitant]
     Indication: HYPOTHYROIDISM
     Dosage: UNK, UNK
     Route: 065
     Dates: start: 2003

REACTIONS (9)
  - Loss of consciousness [Recovered/Resolved]
  - Dizziness [Recovered/Resolved]
  - Fall [Recovered/Resolved]
  - Head injury [Recovered/Resolved]
  - Nausea [Recovered/Resolved]
  - Vomiting [Recovered/Resolved]
  - Neck pain [Recovering/Resolving]
  - Arthralgia [Recovered/Resolved]
  - Dry mouth [Recovered/Resolved]
